FAERS Safety Report 21465186 (Version 1)
Quarter: 2022Q4

REPORT INFORMATION
  Report Type: Spontaneous
  Country: US (occurrence: None)
  Receive Date: 20221016
  Receipt Date: 20221016
  Transmission Date: 20230112
  Serious: Yes (Death, Life-Threatening, Hospitalization, Other)
  Sender: FDA-Public Use
  Company Number: None

PATIENT
  Age: 76 Year
  Sex: Male

DRUGS (4)
  1. AXICABTAGENE CILOLEUCEL [Suspect]
     Active Substance: AXICABTAGENE CILOLEUCEL
     Indication: Chemotherapy
     Dosage: OTHER FREQUENCY : ONCE OVER 30 MIN;?
     Route: 042
     Dates: start: 20220614, end: 20220614
  2. TOCILIZUMAB [Concomitant]
     Active Substance: TOCILIZUMAB
  3. DEXAMETHASONE [Concomitant]
     Active Substance: DEXAMETHASONE
  4. LEVETIRACETAM [Concomitant]
     Active Substance: LEVETIRACETAM

REACTIONS (13)
  - Immune effector cell-associated neurotoxicity syndrome [None]
  - Cytokine release syndrome [None]
  - Diarrhoea [None]
  - Muscle twitching [None]
  - Atrial fibrillation [None]
  - Confusional state [None]
  - Tachypnoea [None]
  - Colitis [None]
  - Pulmonary oedema [None]
  - Subdural haematoma [None]
  - Cerebral mass effect [None]
  - Hospice care [None]
  - Somnolence [None]

NARRATIVE: CASE EVENT DATE: 20220614
